FAERS Safety Report 8379522-7 (Version None)
Quarter: 2012Q1

REPORT INFORMATION
  Report Type: 
  Country: None (occurrence: None)
  Receive Date: 20120323
  Receipt Date: 20110725
  Transmission Date: 20120608
  Serious: Yes (Other)
  Sender: FDA-Public Use
  Company Number: 163-21880-11031065

PATIENT
  Age: 60 Year
  Sex: Male

DRUGS (6)
  1. PRINIVIL (LISINOPRIL) (UNKNOWN) [Concomitant]
  2. VALTREX (VALACICLOVIR HYDROCHLORIDE) (UNKNOWN) [Concomitant]
  3. CELEXA (CITALOPRAM HYDROBROMIDE) (UNKNOWN) [Concomitant]
  4. REVLIMID [Suspect]
     Indication: AMYLOIDOSIS
     Dosage: 10 MG, 1 IN 1 D, PO
     Route: 048
     Dates: start: 20110105, end: 20110224
  5. DECADRON [Concomitant]
  6. PROTONIX (PANTOPRAZOLE) (UNKNOWN) [Concomitant]

REACTIONS (1)
  - PLATELET COUNT DECREASED [None]
